FAERS Safety Report 9380938 (Version 3)
Quarter: 2013Q4

REPORT INFORMATION
  Report Type: Spontaneous
  Country: HU (occurrence: HU)
  Receive Date: 20130703
  Receipt Date: 20131128
  Transmission Date: 20140711
  Serious: Yes (Hospitalization, Other)
  Sender: FDA-Public Use
  Company Number: HU-ROCHE-1242223

PATIENT
  Age: 75 Year
  Sex: Male

DRUGS (5)
  1. AVASTIN [Suspect]
     Indication: AGE-RELATED MACULAR DEGENERATION
     Dosage: CONCENTRATE FOR SOLUTION FOR INFUSION
     Route: 031
     Dates: start: 20130115, end: 20130527
  2. AVASTIN [Suspect]
     Indication: OFF LABEL USE
     Dosage: DOSE: 1.25/0.05
     Route: 050
     Dates: start: 20120809
  3. SERETIDE DISKUS [Concomitant]
     Indication: ASTHMA
     Route: 055
  4. SPIRIVA [Concomitant]
     Indication: ASTHMA
     Dosage: POWDER
     Route: 055
  5. VENTOLIN [Concomitant]
     Indication: ASTHMA
     Route: 055

REACTIONS (4)
  - Uveitis [Recovered/Resolved]
  - Hypotony of eye [Recovered/Resolved]
  - Retinal haemorrhage [Recovered/Resolved]
  - Off label use [Unknown]
